FAERS Safety Report 26074185 (Version 1)
Quarter: 2025Q4

REPORT INFORMATION
  Report Type: Spontaneous
  Country: US (occurrence: US)
  Receive Date: 20251121
  Receipt Date: 20251121
  Transmission Date: 20260118
  Serious: Yes (Hospitalization, Other)
  Sender: SOLENO THERAPEUTICS
  Company Number: US-SOLENO THERAPEUTICS, INC.-SOL2025000773

PATIENT
  Sex: Female
  Weight: 140 kg

DRUGS (1)
  1. VYKAT XR [Suspect]
     Active Substance: DIAZOXIDE CHOLINE
     Indication: Product used for unknown indication
     Dosage: UNK
     Route: 065
     Dates: start: 202510

REACTIONS (5)
  - Acinetobacter sepsis [Unknown]
  - Acute respiratory failure [Unknown]
  - Abnormal behaviour [Unknown]
  - Oedema peripheral [Unknown]
  - Constipation [Unknown]

NARRATIVE: CASE EVENT DATE: 20250101
